FAERS Safety Report 6141215-4 (Version None)
Quarter: 2009Q2

REPORT INFORMATION
  Report Type: 
  Country: None (occurrence: None)
  Receive Date: 20090402
  Receipt Date: 20090323
  Transmission Date: 20091009
  Serious: Yes (Life-Threatening, Other)
  Sender: FDA-Public Use
  Company Number: GB-JNJFOC-20070100334

PATIENT
  Sex: Female
  Weight: 90 kg

DRUGS (16)
  1. REMICADE [Suspect]
     Route: 042
  2. REMICADE [Suspect]
     Indication: RHEUMATOID ARTHRITIS
     Route: 042
  3. METHOTREXATE [Concomitant]
     Route: 065
  4. METHOTREXATE [Concomitant]
     Route: 065
  5. ASPIRIN [Concomitant]
     Route: 065
  6. ATENOLOL [Concomitant]
     Route: 065
  7. BENDROFLUAZIDE [Concomitant]
     Route: 065
  8. FOLIC ACID [Concomitant]
     Route: 065
  9. LISINOPRIL [Concomitant]
     Route: 065
  10. MOXONIDINE [Concomitant]
     Route: 065
  11. PIRITON [Concomitant]
     Route: 065
  12. RANITIDINE [Concomitant]
     Route: 065
  13. SURGAM [Concomitant]
     Route: 065
  14. LOSARTAN POTASSIUM [Concomitant]
     Route: 065
  15. PARACETAMOL [Concomitant]
     Route: 065
  16. HRT [Concomitant]
     Route: 065

REACTIONS (1)
  - MALIGNANT PERITONEAL NEOPLASM [None]
